FAERS Safety Report 17746409 (Version 1)
Quarter: 2020Q2

REPORT INFORMATION
  Report Type: Spontaneous
  Country: US (occurrence: US)
  Receive Date: 20200505
  Receipt Date: 20200505
  Transmission Date: 20200714
  Serious: Yes (Hospitalization)
  Sender: FDA-Public Use
  Company Number: None

PATIENT
  Age: 72 Year
  Sex: Male
  Weight: 68.9 kg

DRUGS (1)
  1. DAPTOMYCIN. [Suspect]
     Active Substance: DAPTOMYCIN
     Indication: ARTHRITIS BACTERIAL
     Route: 042
     Dates: start: 20200404, end: 20200414

REACTIONS (3)
  - Hyperkalaemia [None]
  - Rhabdomyolysis [None]
  - Acute kidney injury [None]

NARRATIVE: CASE EVENT DATE: 20200414
